FAERS Safety Report 9752465 (Version 1)
Quarter: 2013Q4

REPORT INFORMATION
  Report Type: Spontaneous
  Country: JP (occurrence: JP)
  Receive Date: 20131213
  Receipt Date: 20131213
  Transmission Date: 20140711
  Serious: Yes (Other)
  Sender: FDA-Public Use
  Company Number: JP-SA-2013SA129557

PATIENT
  Age: 70 Year
  Sex: Male

DRUGS (2)
  1. MYSLEE [Suspect]
     Indication: INSOMNIA
     Route: 048
  2. RISPERDAL [Concomitant]

REACTIONS (6)
  - Haemorrhage subcutaneous [Unknown]
  - Blood pressure decreased [Recovered/Resolved]
  - Subdural haematoma [Unknown]
  - Fall [Unknown]
  - Depressed level of consciousness [Unknown]
  - Medication error [Unknown]
